FAERS Safety Report 5199979-2 (Version None)
Quarter: 2007Q1

REPORT INFORMATION
  Report Type: 
  Country: None (occurrence: None)
  Receive Date: 20070105
  Receipt Date: 20061227
  Transmission Date: 20070707
  Serious: Yes (Hospitalization)
  Sender: FDA-Public Use
  Company Number: 2006GB02396

PATIENT
  Age: 47 Year
  Sex: Male

DRUGS (6)
  1. OMEPRAZOLE [Suspect]
     Route: 048
  2. CO-CODAMOL [Concomitant]
  3. CO-CODAPRIN [Concomitant]
  4. NITRAZEPAM [Concomitant]
  5. VENTOLIN [Concomitant]
     Route: 055
  6. SODIUM CROMOGLICATE [Concomitant]
     Route: 055

REACTIONS (9)
  - ABDOMINAL PAIN UPPER [None]
  - BLISTER [None]
  - DIZZINESS [None]
  - HEADACHE [None]
  - MALAISE [None]
  - RASH PRURITIC [None]
  - SOMNOLENCE [None]
  - SYNCOPE [None]
  - VISION BLURRED [None]
